FAERS Safety Report 7797203-5 (Version None)
Quarter: 2011Q4

REPORT INFORMATION
  Report Type: 
  Country: None (occurrence: None)
  Receive Date: 20111003
  Receipt Date: 20110915
  Transmission Date: 20120403
  Serious: Yes (Hospitalization, Other)
  Sender: FDA-Public Use
  Company Number: DSA_44446_2010

PATIENT
  Age: 30 Year
  Sex: Female

DRUGS (2)
  1. DILTIAZEM HCL [Suspect]
     Indication: INTENTIONAL OVERDOSE
     Dosage: (NOT THE PRESCRIBED AMOUNT;ONCE)
  2. AMIODARONE HCL [Suspect]
     Indication: INTENTIONAL OVERDOSE
     Dosage: (NOT THE PRESCRIBED AMOUNT;ONCE)

REACTIONS (7)
  - CONFUSIONAL STATE [None]
  - MITRAL VALVE INCOMPETENCE [None]
  - TOXICITY TO VARIOUS AGENTS [None]
  - CARDIOGENIC SHOCK [None]
  - MULTIPLE DRUG OVERDOSE INTENTIONAL [None]
  - BLOOD GLUCOSE INCREASED [None]
  - RENAL FAILURE [None]
